FAERS Safety Report 7953902-3 (Version None)
Quarter: 2011Q4

REPORT INFORMATION
  Report Type: 
  Country: None (occurrence: None)
  Receive Date: 20111202
  Receipt Date: 20111129
  Transmission Date: 20120403
  Serious: Yes (Death)
  Sender: FDA-Public Use
  Company Number: DK-BRISTOL-MYERS SQUIBB COMPANY-16227456

PATIENT
  Age: 70 Year
  Sex: Female

DRUGS (5)
  1. ERBITUX [Suspect]
     Indication: GASTROOESOPHAGEAL CANCER
     Route: 042
  2. ATROPINE [Concomitant]
     Indication: PROPHYLAXIS
  3. PREDNISONE TAB [Concomitant]
     Indication: PREMEDICATION
     Route: 048
  4. IRINOTECAN HCL [Concomitant]
     Indication: GASTROOESOPHAGEAL CANCER
  5. ONDANSETRON [Concomitant]
     Indication: PREMEDICATION
     Dosage: 1 DF=8MGX2,BEFORE IRINOTECAN INFU.
     Route: 048

REACTIONS (1)
  - PULMONARY EMBOLISM [None]
